FAERS Safety Report 8909511 (Version 3)
Quarter: 2013Q1

REPORT INFORMATION
  Report Type: Spontaneous
  Country: US (occurrence: US)
  Receive Date: 20121114
  Receipt Date: 20130315
  Transmission Date: 20140127
  Serious: No
  Sender: FDA-Public Use
  Company Number: US-009507513-1211USA002477

PATIENT
  Age: 23 Year
  Sex: Female
  Weight: 68.48 kg

DRUGS (3)
  1. NEXPLANON [Suspect]
     Indication: CONTRACEPTION
     Dosage: 68 MG, ONE FOR UP TO 3 YEARS
     Route: 059
     Dates: start: 20120820, end: 20121204
  2. HUMIRA [Concomitant]
     Dosage: UNK, EVERY 2 WEEKS
     Dates: start: 201201
  3. PREDNISONE [Concomitant]
     Dosage: UNK
     Dates: start: 20121017

REACTIONS (2)
  - Carpal tunnel syndrome [Unknown]
  - Mood swings [Unknown]
